FAERS Safety Report 8480785-8 (Version None)
Quarter: 2012Q2

REPORT INFORMATION
  Report Type: 
  Country: None (occurrence: None)
  Receive Date: 20120622
  Receipt Date: 20120614
  Transmission Date: 20120825
  Serious: Yes (Death)
  Sender: FDA-Public Use
  Company Number: ADR-2012-01106

PATIENT
  Sex: Male

DRUGS (2)
  1. LIORESAL [Suspect]
     Indication: MUSCLE SPASTICITY
     Dosage: 225 MCG/DAY
  2. LIORESAL [Suspect]
     Indication: BRAIN INJURY
     Dosage: 225 MCG/DAY

REACTIONS (1)
  - DEATH [None]
